FAERS Safety Report 8215515-8 (Version None)
Quarter: 2012Q1

REPORT INFORMATION
  Report Type: 
  Country: None (occurrence: None)
  Receive Date: 20120229
  Receipt Date: 20110922
  Transmission Date: 20120608
  Serious: Yes (Hospitalization)
  Sender: FDA-Public Use
  Company Number: PHEH2011US05270

PATIENT
  Age: 58 Year
  Sex: Male

DRUGS (1)
  1. NEORAL [Suspect]
     Indication: LIVER TRANSPLANT
     Dosage: 125 MG IN THE MORNING AND 100 MG IN THE AFTERNOON, ORAL
     Route: 048
     Dates: start: 20040101

REACTIONS (1)
  - SEPSIS [None]
